FAERS Safety Report 13869249 (Version 2)
Quarter: 2017Q4

REPORT INFORMATION
  Report Type: Other
  Country: JP (occurrence: JP)
  Receive Date: 20170815
  Receipt Date: 20171013
  Transmission Date: 20180320
  Serious: Yes (Death, Hospitalization, Other)
  Sender: FDA-Public Use
  Company Number: JP-ACTELION-A-CH2017-157833

PATIENT
  Age: 70 Year
  Sex: Male

DRUGS (4)
  1. TRACLEER [Suspect]
     Active Substance: BOSENTAN
     Indication: PULMONARY HYPERTENSION
     Route: 048
  2. EPOPROSTENOL ACT [Suspect]
     Active Substance: EPOPROSTENOL
     Indication: PULMONARY HYPERTENSION
     Route: 042
  3. PREDNISOLONE. [Concomitant]
     Active Substance: PREDNISOLONE
     Dosage: 10 MG, UNK
  4. TADALAFIL [Concomitant]
     Active Substance: TADALAFIL
     Route: 065

REACTIONS (27)
  - Glomerulonephritis rapidly progressive [Unknown]
  - Vomiting [Unknown]
  - Respiratory failure [Fatal]
  - Respiratory disorder [Fatal]
  - Blood creatinine increased [Unknown]
  - Urine output decreased [Unknown]
  - Pulmonary alveolar haemorrhage [Unknown]
  - Haemodialysis [Unknown]
  - Proteinuria [Unknown]
  - Gastroenteritis [Unknown]
  - Cold sweat [Unknown]
  - Oedema peripheral [Unknown]
  - Hypophagia [Unknown]
  - Pulmonary renal syndrome [Fatal]
  - Dyspnoea [Fatal]
  - Haemoptysis [Unknown]
  - Peripheral coldness [Unknown]
  - Pyrexia [Unknown]
  - Inflammation [Unknown]
  - Occult blood [Unknown]
  - Renal failure [Unknown]
  - Pneumonia aspiration [Unknown]
  - Epistaxis [Unknown]
  - Concomitant disease aggravated [Unknown]
  - Azotaemia [Unknown]
  - Pulmonary hypertension [Unknown]
  - Blood pressure increased [Unknown]
